FAERS Safety Report 5820091-0 (Version None)
Quarter: 2008Q3

REPORT INFORMATION
  Report Type: 
  Country: None (occurrence: None)
  Receive Date: 20080721
  Receipt Date: 20080708
  Transmission Date: 20090109
  Serious: Yes (Hospitalization, Other)
  Sender: FDA-Public Use
  Company Number: 2008BI009015

PATIENT
  Age: 49 Year
  Sex: Female
  Weight: 54.4316 kg

DRUGS (10)
  1. TYSABRI [Suspect]
     Indication: MULTIPLE SCLEROSIS
     Dosage: 300 MG QM IV
     Route: 042
     Dates: start: 20070702
  2. ASPIRIN [Concomitant]
  3. COREG [Concomitant]
  4. VERAPAMIL [Concomitant]
  5. DETROL [Concomitant]
  6. SERZONE [Concomitant]
  7. NITROGLYCERIN [Concomitant]
  8. LIPITOR [Concomitant]
  9. PROVIGIL [Concomitant]
  10. IMDUR [Concomitant]

REACTIONS (9)
  - ARTERIOSPASM CORONARY [None]
  - BLOOD CALCIUM DECREASED [None]
  - CEREBROVASCULAR ACCIDENT [None]
  - HYPERTENSION [None]
  - HYPOKALAEMIA [None]
  - OEDEMATOUS PANCREATITIS [None]
  - OPTIC NEURITIS [None]
  - PANCREATITIS [None]
  - PERICARDITIS [None]
